FAERS Safety Report 8420904-2 (Version None)
Quarter: 2012Q2

REPORT INFORMATION
  Report Type: 
  Country: None (occurrence: None)
  Receive Date: 20120608
  Receipt Date: 20120604
  Transmission Date: 20120825
  Serious: Yes (Hospitalization, Other)
  Sender: FDA-Public Use
  Company Number: US-PFIZER INC-2012134047

PATIENT
  Age: 56 Year
  Sex: Male

DRUGS (5)
  1. LISINOPRIL [Suspect]
     Indication: BLOOD PRESSURE
     Dosage: UNK
  2. NORVASC [Suspect]
     Indication: BLOOD PRESSURE
  3. ZOLOFT [Suspect]
  4. INTRON [Suspect]
     Dosage: 36 MILLIONIU, UNK
     Dates: end: 20111111
  5. INTRON [Suspect]
     Indication: MALIGNANT MELANOMA
     Dosage: 20 MU/M2/DAY IV FOR 5 DAYS/WEEK X 4 WEEKS, 10 MU/M2/DAY SC QOD X 48 WEEKS
     Dates: start: 20110815, end: 20111005

REACTIONS (5)
  - HYPOCHLORAEMIA [None]
  - INAPPROPRIATE ANTIDIURETIC HORMONE SECRETION [None]
  - RASH [None]
  - ORTHOSTATIC HYPOTENSION [None]
  - HYPONATRAEMIA [None]
